FAERS Safety Report 21746636 (Version 9)
Quarter: 2023Q1

REPORT INFORMATION
  Report Type: Spontaneous
  Country: HR (occurrence: HR)
  Receive Date: 20221219
  Receipt Date: 20230309
  Transmission Date: 20230418
  Serious: Yes (Other)
  Sender: FDA-Public Use
  Company Number: HR-BRISTOL-MYERS SQUIBB COMPANY-2022-151110

PATIENT
  Age: 73 Year
  Sex: Male
  Weight: 105 kg

DRUGS (61)
  1. DABIGATRAN [Suspect]
     Active Substance: DABIGATRAN
     Indication: Product used for unknown indication
  2. DABIGATRAN [Suspect]
     Active Substance: DABIGATRAN
  3. METOPROLOL TARTRATE [Suspect]
     Active Substance: METOPROLOL TARTRATE
     Indication: Product used for unknown indication
     Route: 065
  4. METOPROLOL TARTRATE [Suspect]
     Active Substance: METOPROLOL TARTRATE
     Route: 065
  5. METOPROLOL TARTRATE [Suspect]
     Active Substance: METOPROLOL TARTRATE
     Route: 065
  6. METOPROLOL TARTRATE [Suspect]
     Active Substance: METOPROLOL TARTRATE
     Route: 065
  7. CLOPIDOGREL BISULFATE [Suspect]
     Active Substance: CLOPIDOGREL BISULFATE
     Indication: Product used for unknown indication
     Route: 065
  8. CLOPIDOGREL BISULFATE [Suspect]
     Active Substance: CLOPIDOGREL BISULFATE
     Route: 065
  9. CLOPIDOGREL BISULFATE [Suspect]
     Active Substance: CLOPIDOGREL BISULFATE
     Route: 065
     Dates: start: 2016
  10. CLOPIDOGREL BISULFATE [Suspect]
     Active Substance: CLOPIDOGREL BISULFATE
     Route: 065
     Dates: end: 2016
  11. CLOPIDOGREL BISULFATE [Suspect]
     Active Substance: CLOPIDOGREL BISULFATE
     Route: 065
  12. CLOPIDOGREL BISULFATE [Suspect]
     Active Substance: CLOPIDOGREL BISULFATE
     Route: 065
  13. APIXABAN [Suspect]
     Active Substance: APIXABAN
     Indication: Product used for unknown indication
     Route: 065
  14. APIXABAN [Suspect]
     Active Substance: APIXABAN
     Dosage: 0.5
     Route: 065
  15. APIXABAN [Suspect]
     Active Substance: APIXABAN
     Route: 048
  16. APIXABAN [Suspect]
     Active Substance: APIXABAN
     Dosage: 2X/DAY
     Route: 048
  17. APIXABAN [Suspect]
     Active Substance: APIXABAN
     Route: 048
  18. APIXABAN [Suspect]
     Active Substance: APIXABAN
     Route: 065
  19. APIXABAN [Suspect]
     Active Substance: APIXABAN
     Dosage: 2X/DAY
     Route: 048
  20. APIXABAN [Suspect]
     Active Substance: APIXABAN
     Dosage: 0.5
     Route: 065
  21. APIXABAN [Suspect]
     Active Substance: APIXABAN
  22. APIXABAN [Suspect]
     Active Substance: APIXABAN
     Dosage: 0.5
     Route: 065
  23. WARFARIN SODIUM [Suspect]
     Active Substance: WARFARIN SODIUM
     Indication: Product used for unknown indication
     Route: 065
  24. WARFARIN SODIUM [Suspect]
     Active Substance: WARFARIN SODIUM
     Route: 065
  25. WARFARIN SODIUM [Suspect]
     Active Substance: WARFARIN SODIUM
     Route: 065
  26. WARFARIN SODIUM [Suspect]
     Active Substance: WARFARIN SODIUM
     Route: 065
  27. WARFARIN SODIUM [Suspect]
     Active Substance: WARFARIN SODIUM
     Route: 065
  28. WARFARIN SODIUM [Suspect]
     Active Substance: WARFARIN SODIUM
     Route: 065
  29. WARFARIN SODIUM [Suspect]
     Active Substance: WARFARIN SODIUM
     Route: 065
  30. WARFARIN SODIUM [Suspect]
     Active Substance: WARFARIN SODIUM
     Route: 065
  31. PANTOPRAZOLE [Suspect]
     Active Substance: PANTOPRAZOLE
     Indication: Product used for unknown indication
     Route: 065
  32. PANTOPRAZOLE [Suspect]
     Active Substance: PANTOPRAZOLE
     Route: 065
  33. PANTOPRAZOLE [Suspect]
     Active Substance: PANTOPRAZOLE
     Route: 065
  34. PANTOPRAZOLE [Suspect]
     Active Substance: PANTOPRAZOLE
     Route: 065
  35. PANTOPRAZOLE [Suspect]
     Active Substance: PANTOPRAZOLE
  36. MESALAMINE [Suspect]
     Active Substance: MESALAMINE
     Indication: Product used for unknown indication
     Route: 065
     Dates: start: 2016
  37. MESALAMINE [Suspect]
     Active Substance: MESALAMINE
     Route: 065
     Dates: start: 2016
  38. MESALAMINE [Suspect]
     Active Substance: MESALAMINE
     Route: 065
     Dates: end: 2016
  39. ASPIRIN [Suspect]
     Active Substance: ASPIRIN
     Indication: Product used for unknown indication
     Route: 065
     Dates: end: 2016
  40. ASPIRIN [Suspect]
     Active Substance: ASPIRIN
     Route: 065
     Dates: end: 2016
  41. ASPIRIN [Suspect]
     Active Substance: ASPIRIN
     Route: 065
     Dates: end: 2016
  42. DALTEPARIN SODIUM [Suspect]
     Active Substance: DALTEPARIN SODIUM
     Indication: Product used for unknown indication
     Dosage: 0.5
     Route: 065
  43. DALTEPARIN SODIUM [Suspect]
     Active Substance: DALTEPARIN SODIUM
     Dosage: 0.5
     Route: 065
  44. ROSUVASTATIN [Suspect]
     Active Substance: ROSUVASTATIN
     Indication: Product used for unknown indication
     Route: 065
  45. ROSUVASTATIN [Suspect]
     Active Substance: ROSUVASTATIN
     Route: 065
  46. ROSUVASTATIN [Suspect]
     Active Substance: ROSUVASTATIN
     Route: 065
  47. ROSUVASTATIN [Suspect]
     Active Substance: ROSUVASTATIN
     Route: 065
  48. PANTOPRAZOLE SODIUM [Suspect]
     Active Substance: PANTOPRAZOLE SODIUM
     Indication: Product used for unknown indication
     Dosage: PANTOPRAZOLE SODIUM [PANTOPRAZOLE SODIUM]
     Route: 065
  49. METOPROLOL [Suspect]
     Active Substance: METOPROLOL
     Indication: Product used for unknown indication
     Dosage: METOPROLOL SALT NOT SPECIFIED
     Route: 065
  50. METOPROLOL [Suspect]
     Active Substance: METOPROLOL
     Route: 065
  51. DALTEPARIN [Suspect]
     Active Substance: DALTEPARIN
     Indication: Product used for unknown indication
  52. DALTEPARIN [Suspect]
     Active Substance: DALTEPARIN
     Dosage: 0.5
     Route: 065
  53. DALTEPARIN [Suspect]
     Active Substance: DALTEPARIN
     Route: 065
  54. CLOPIDOGREL [Suspect]
     Active Substance: CLOPIDOGREL BISULFATE
     Indication: Product used for unknown indication
     Dates: end: 2016
  55. CLOPIDOGREL [Suspect]
     Active Substance: CLOPIDOGREL BISULFATE
     Route: 065
     Dates: start: 2016
  56. AMIODARONE HYDROCHLORIDE [Suspect]
     Active Substance: AMIODARONE HYDROCHLORIDE
     Indication: Product used for unknown indication
  57. AMIODARONE HYDROCHLORIDE [Suspect]
     Active Substance: AMIODARONE HYDROCHLORIDE
  58. RAMIPRIL [Suspect]
     Active Substance: RAMIPRIL
     Indication: Product used for unknown indication
  59. RAMIPRIL [Suspect]
     Active Substance: RAMIPRIL
  60. RAMIPRIL [Suspect]
     Active Substance: RAMIPRIL
     Route: 065
  61. WARFARIN [Suspect]
     Active Substance: WARFARIN
     Indication: Product used for unknown indication
     Route: 065

REACTIONS (7)
  - Atrial fibrillation [Unknown]
  - Anastomotic infection [Unknown]
  - Adenocarcinoma of colon [Unknown]
  - Adenocarcinoma of colon [Unknown]
  - Atrial fibrillation [Unknown]
  - Anastomotic infection [Unknown]
  - Increased tendency to bruise [Unknown]

NARRATIVE: CASE EVENT DATE: 20160101
